FAERS Safety Report 7759118-8 (Version None)
Quarter: 2011Q3

REPORT INFORMATION
  Report Type: 
  Country: None (occurrence: None)
  Receive Date: 20110919
  Receipt Date: 20110909
  Transmission Date: 20111222
  Serious: Yes (Hospitalization)
  Sender: FDA-Public Use
  Company Number: PHHY2011JP80499

PATIENT
  Age: 78 Year
  Sex: Male

DRUGS (1)
  1. EXELON [Suspect]
     Indication: DEMENTIA ALZHEIMER'S TYPE
     Dosage: 4.5 MG, UNK
     Route: 062

REACTIONS (2)
  - ARTERIOSCLEROSIS OBLITERANS [None]
  - HAEMORRHAGE [None]
